FAERS Safety Report 7913127-4 (Version None)
Quarter: 2011Q4

REPORT INFORMATION
  Report Type: 
  Country: None (occurrence: None)
  Receive Date: 20111114
  Receipt Date: 20111107
  Transmission Date: 20120403
  Serious: Yes (Disabling, Other)
  Sender: FDA-Public Use
  Company Number: US-BAYER-2011-108931

PATIENT
  Sex: Male

DRUGS (3)
  1. CIPROFLOXACIN [Suspect]
     Indication: POSTOPERATIVE CARE
     Dosage: UNK
     Dates: start: 20100524, end: 20100530
  2. CIPROFLOXACIN [Suspect]
     Indication: COUGH
     Dosage: UNK
     Dates: start: 20100509, end: 20100516
  3. PREDNISONE [Suspect]

REACTIONS (3)
  - TENDON RUPTURE [None]
  - DYSPNOEA [None]
  - TENDON INJURY [None]
